FAERS Safety Report 24248927 (Version 1)
Quarter: 2024Q3

REPORT INFORMATION
  Report Type: Spontaneous
  Country: US (occurrence: None)
  Receive Date: 20240823
  Receipt Date: 20240823
  Transmission Date: 20241017
  Serious: Yes (unspecified)
  Sender: Public
  Company Number: None

PATIENT
  Age: 40 Year
  Sex: Female

DRUGS (1)
  1. HUMIRA [Suspect]
     Active Substance: ADALIMUMAB
     Indication: Uveitis
     Dosage: FREQUENCY : WEEKLY;?

REACTIONS (5)
  - Ocular melanoma [None]
  - Condition aggravated [None]
  - Uveitis [None]
  - Blindness [None]
  - Ocular neoplasm [None]
